FAERS Safety Report 6705053-3 (Version None)
Quarter: 2010Q2

REPORT INFORMATION
  Report Type: 
  Country: None (occurrence: None)
  Receive Date: 20100430
  Receipt Date: 20100430
  Transmission Date: 20101027
  Serious: Yes (Other)
  Sender: FDA-Public Use
  Company Number: B0649751A

PATIENT
  Sex: Male

DRUGS (5)
  1. VALACYCLOVIR [Suspect]
     Dosage: 250MG PER DAY
     Route: 048
     Dates: start: 20100301
  2. VALACYCLOVIR [Suspect]
     Dosage: 1TAB VARIABLE DOSE
     Route: 048
  3. APRANAX [Suspect]
     Indication: BACK PAIN
     Route: 065
     Dates: start: 20100420, end: 20100401
  4. ANTI INFLAMMATORY DRUG [Suspect]
     Indication: BACK PAIN
     Route: 065
  5. IBUPROFENE [Suspect]
     Indication: DRUG USE FOR UNKNOWN INDICATION
     Route: 065

REACTIONS (8)
  - ANGIOEDEMA [None]
  - DRUG INTERACTION [None]
  - ERYTHEMA [None]
  - LIP SWELLING [None]
  - OCULAR HYPERAEMIA [None]
  - PARAESTHESIA ORAL [None]
  - RASH GENERALISED [None]
  - SWELLING FACE [None]
